FAERS Safety Report 23163376 (Version 3)
Quarter: 2023Q4

REPORT INFORMATION
  Report Type: Spontaneous
  Country: JP (occurrence: JP)
  Receive Date: 20231109
  Receipt Date: 20231205
  Transmission Date: 20240110
  Serious: Yes (Death, Other)
  Sender: FDA-Public Use
  Company Number: JP-NBI-BJ202318651

PATIENT
  Age: 85 Year
  Sex: Male

DRUGS (2)
  1. IDARUCIZUMAB [Suspect]
     Active Substance: IDARUCIZUMAB
     Indication: Procoagulant therapy
     Route: 042
     Dates: start: 20231101, end: 20231101
  2. CLOPIDOGREL [Concomitant]
     Active Substance: CLOPIDOGREL BISULFATE
     Indication: Peripheral arterial occlusive disease
     Route: 048
     Dates: end: 20231101

REACTIONS (2)
  - Acute myocardial infarction [Fatal]
  - Shock [Unknown]

NARRATIVE: CASE EVENT DATE: 20231102
